FAERS Safety Report 11751382 (Version 1)
Quarter: 2015Q4

REPORT INFORMATION
  Report Type: Spontaneous
  Country: US (occurrence: US)
  Receive Date: 20151118
  Receipt Date: 20151118
  Transmission Date: 20160304
  Serious: Yes (Hospitalization)
  Sender: FDA-Public Use
  Company Number: US-NOVOPROD-427641

PATIENT
  Age: 50 Year
  Sex: Female
  Weight: 49.43 kg

DRUGS (2)
  1. NOVOLOG [Suspect]
     Active Substance: INSULIN ASPART
     Indication: TYPE 2 DIABETES MELLITUS
     Dosage: 10 U, TID
     Route: 058
     Dates: start: 2014
  2. LEVEMIR [Suspect]
     Active Substance: INSULIN DETEMIR
     Indication: TYPE 2 DIABETES MELLITUS
     Dosage: 10 U, QD AT NIGHT
     Route: 058
     Dates: start: 2014

REACTIONS (4)
  - Hypoglycaemic unconsciousness [Recovered/Resolved]
  - Hypoglycaemic seizure [Recovered/Resolved]
  - Hypoglycaemic unconsciousness [Recovered/Resolved]
  - Hypoglycaemic seizure [Recovered/Resolved]

NARRATIVE: CASE EVENT DATE: 201405
